FAERS Safety Report 16656305 (Version 1)
Quarter: 2019Q3

REPORT INFORMATION
  Report Type: Spontaneous
  Country: US (occurrence: US)
  Receive Date: 20190801
  Receipt Date: 20190801
  Transmission Date: 20191004
  Serious: No
  Sender: FDA-Public Use
  Company Number: US-PACIRA-201500108

PATIENT
  Sex: Female

DRUGS (1)
  1. EXPAREL [Suspect]
     Active Substance: BUPIVACAINE
     Dosage: UNK UNK, DERMAL EXPOSURE, FREQUENCY : UNK
     Route: 050

REACTIONS (4)
  - Accidental exposure to product [None]
  - Hypersensitivity [Unknown]
  - Arthralgia [Recovered/Resolved]
  - Pain in extremity [Unknown]

NARRATIVE: CASE EVENT DATE: 20151225
